FAERS Safety Report 14613880 (Version 1)
Quarter: 2018Q1

REPORT INFORMATION
  Report Type: Spontaneous
  Country: US (occurrence: US)
  Receive Date: 20180308
  Receipt Date: 20180308
  Transmission Date: 20180509
  Serious: No
  Sender: FDA-Public Use
  Company Number: None

PATIENT
  Age: 80 Year
  Sex: Female

DRUGS (1)
  1. SAMSCA [Suspect]
     Active Substance: TOLVAPTAN
     Dosage: 15MG .5 T PO QD ORAL
     Route: 048
     Dates: start: 20170901

REACTIONS (2)
  - Liver disorder [None]
  - Off label use [None]

NARRATIVE: CASE EVENT DATE: 20170307
